FAERS Safety Report 21660745 (Version 1)
Quarter: 2022Q4

REPORT INFORMATION
  Report Type: Report from Study
  Country: US (occurrence: US)
  Receive Date: 20221130
  Receipt Date: 20221130
  Transmission Date: 20230112
  Serious: No
  Sender: FDA-Public Use
  Company Number: US-ABBVIE-22K-163-4479591-00

PATIENT
  Age: 60 Year
  Sex: Male

DRUGS (1)
  1. IMBRUVICA [Suspect]
     Active Substance: IBRUTINIB
     Indication: Mantle cell lymphoma
     Route: 048

REACTIONS (9)
  - Lung disorder [Unknown]
  - Onychoclasis [Unknown]
  - Multiple allergies [Unknown]
  - Rhinorrhoea [Unknown]
  - Throat irritation [Unknown]
  - Blood sodium decreased [Unknown]
  - Pyrexia [Unknown]
  - Productive cough [Unknown]
  - Nail bed bleeding [Unknown]

NARRATIVE: CASE EVENT DATE: 20221001
